FAERS Safety Report 23430830 (Version 2)
Quarter: 2024Q1

REPORT INFORMATION
  Report Type: Spontaneous
  Country: US (occurrence: US)
  Receive Date: 20240123
  Receipt Date: 20240130
  Transmission Date: 20240410
  Serious: No
  Sender: FDA-Public Use
  Company Number: US-JNJFOC-20231276162

PATIENT
  Age: 81 Year
  Sex: Male

DRUGS (1)
  1. TYLENOL 8 HR ARTHRITIS PAIN [Suspect]
     Active Substance: ACETAMINOPHEN
     Indication: Sciatica
     Dosage: TAKING TYLENOL 8HR BOTTLES ARTHRITIS FOR A LONG TIME. GOT RID OF SCIATIC WITH HEAVY DOSES OF TYLENO
     Route: 065

REACTIONS (1)
  - Incorrect dose administered [Unknown]
